FAERS Safety Report 6574274-5 (Version None)
Quarter: 2010Q1

REPORT INFORMATION
  Report Type: 
  Country: None (occurrence: None)
  Receive Date: 20100208
  Receipt Date: 20100127
  Transmission Date: 20100710
  Serious: Yes (Other)
  Sender: FDA-Public Use
  Company Number: SG-ELI_LILLY_AND_COMPANY-SG201002000089

PATIENT
  Sex: Male

DRUGS (4)
  1. BYETTA [Suspect]
     Indication: TYPE 2 DIABETES MELLITUS
     Dosage: 5 UG, 2/D
     Route: 058
     Dates: end: 20100101
  2. BYETTA [Suspect]
     Dosage: 5 UG, DAILY (1/D)
     Dates: start: 20081101
  3. INSULIN [Concomitant]
     Dosage: 12 U, DAILY (1/D)
  4. METFORMIN HCL [Concomitant]

REACTIONS (4)
  - BACK PAIN [None]
  - NAUSEA [None]
  - OFF LABEL USE [None]
  - PANCREATITIS [None]
